FAERS Safety Report 6219843-7 (Version None)
Quarter: 2009Q2

REPORT INFORMATION
  Report Type: 
  Country: None (occurrence: None)
  Receive Date: 20090609
  Receipt Date: 20090526
  Transmission Date: 20091009
  Serious: Yes (Hospitalization, Other)
  Sender: FDA-Public Use
  Company Number: US-ELI_LILLY_AND_COMPANY-US200905005169

PATIENT
  Sex: Female

DRUGS (2)
  1. FORTEO [Suspect]
     Dates: start: 20090501, end: 20090501
  2. COUMADIN [Concomitant]

REACTIONS (8)
  - ABASIA [None]
  - ASTHENIA [None]
  - BLOOD DISORDER [None]
  - BLOOD GLUCOSE DECREASED [None]
  - BLOOD PRESSURE INCREASED [None]
  - CYSTITIS [None]
  - HOSPITALISATION [None]
  - LOSS OF CONSCIOUSNESS [None]
